FAERS Safety Report 14669978 (Version 2)
Quarter: 2018Q2

REPORT INFORMATION
  Report Type: Spontaneous
  Country: US (occurrence: US)
  Receive Date: 20180322
  Receipt Date: 20180417
  Transmission Date: 20180711
  Serious: No
  Sender: FDA-Public Use
  Company Number: US-LUNDBECK-DKLU2045383

PATIENT
  Sex: Male

DRUGS (2)
  1. SABRIL [Suspect]
     Active Substance: VIGABATRIN
     Route: 048
     Dates: start: 20180117
  2. SABRIL [Suspect]
     Active Substance: VIGABATRIN
     Indication: INFANTILE SPASMS
     Route: 048
     Dates: start: 20180117

REACTIONS (6)
  - Muscle twitching [Unknown]
  - Balance disorder [Unknown]
  - Tremor [Unknown]
  - Pollakiuria [Unknown]
  - Frequent bowel movements [Unknown]
  - Gait disturbance [Unknown]
